FAERS Safety Report 11190670 (Version 1)
Quarter: 2015Q2

REPORT INFORMATION
  Report Type: Spontaneous
  Country: FR (occurrence: FR)
  Receive Date: 20150615
  Receipt Date: 20150615
  Transmission Date: 20150821
  Serious: Yes (Hospitalization, Other)
  Sender: FDA-Public Use
  Company Number: FR-ELI_LILLY_AND_COMPANY-FR201506001155

PATIENT
  Age: 59 Year
  Sex: Male

DRUGS (7)
  1. CARBOPLATIN. [Concomitant]
     Active Substance: CARBOPLATIN
     Dosage: UNK
     Dates: start: 20120721
  2. FERINJECT [Concomitant]
     Active Substance: FERRIC CARBOXYMALTOSE
  3. PRETERAX                           /01421201/ [Concomitant]
     Active Substance: INDAPAMIDE\PERINDOPRIL
  4. ALIMTA [Suspect]
     Active Substance: PEMETREXED DISODIUM
     Indication: PRODUCT USED FOR UNKNOWN INDICATION
     Dosage: UNK UNK, UNKNOWN
     Route: 042
     Dates: start: 20120721
  5. VITAMIN B12 [Concomitant]
     Active Substance: CYANOCOBALAMIN
     Dosage: UNK
     Dates: start: 20141121
  6. FOLIC ACID. [Concomitant]
     Active Substance: FOLIC ACID
     Dosage: UNK
     Dates: start: 20141121
  7. ALIMTA [Suspect]
     Active Substance: PEMETREXED DISODIUM
     Dosage: UNK UNK, UNKNOWN
     Route: 065
     Dates: start: 20140912, end: 20150121

REACTIONS (6)
  - Malignant neoplasm progression [Unknown]
  - Purpura [Recovered/Resolved]
  - Off label use [Unknown]
  - Epistaxis [Recovered/Resolved]
  - Anaemia [Recovered/Resolved]
  - Bone marrow failure [Recovered/Resolved]

NARRATIVE: CASE EVENT DATE: 20141211
